FAERS Safety Report 10522573 (Version 1)
Quarter: 2014Q4

REPORT INFORMATION
  Report Type: Spontaneous
  Country: US (occurrence: US)
  Receive Date: 20141016
  Receipt Date: 20141016
  Transmission Date: 20150528
  Serious: No
  Sender: FDA-Public Use
  Company Number: US-009507513-1410USA002498

PATIENT
  Sex: Male

DRUGS (1)
  1. CLARITIN [Suspect]
     Active Substance: LORATADINE
     Indication: HEADACHE
     Dosage: UNK, UNKNOWN
     Route: 048

REACTIONS (2)
  - Off label use [Unknown]
  - Rhinorrhoea [Unknown]
